FAERS Safety Report 21310059 (Version 5)
Quarter: 2022Q4

REPORT INFORMATION
  Report Type: Report from Study
  Country: CA (occurrence: CA)
  Receive Date: 20220909
  Receipt Date: 20221005
  Transmission Date: 20230112
  Serious: Yes (Other)
  Sender: FDA-Public Use
  Company Number: CA-SAMSUNG BIOEPIS-SB-2022-22137

PATIENT
  Age: 60 Year
  Sex: Male

DRUGS (2)
  1. RENFLEXIS [Suspect]
     Active Substance: INFLIXIMAB-ABDA
     Indication: Colitis ulcerative
     Route: 042
     Dates: start: 20220811
  2. RENFLEXIS [Suspect]
     Active Substance: INFLIXIMAB-ABDA
     Route: 042
     Dates: start: 20220830, end: 20220913

REACTIONS (8)
  - Deep vein thrombosis [Unknown]
  - Chills [Unknown]
  - Ill-defined disorder [Unknown]
  - Flushing [Unknown]
  - Body temperature decreased [Not Recovered/Not Resolved]
  - Tremor [Unknown]
  - Cough [Unknown]
  - Infusion related reaction [Unknown]

NARRATIVE: CASE EVENT DATE: 20220830
